FAERS Safety Report 4815462-5 (Version None)
Quarter: 2005Q4

REPORT INFORMATION
  Report Type: 
  Country: None (occurrence: None)
  Receive Date: 20051028
  Receipt Date: 20051028
  Transmission Date: 20060501
  Serious: Yes (Hospitalization)
  Sender: FDA-Public Use
  Company Number: None

PATIENT
  Age: 69 Year
  Sex: Male
  Weight: 70 kg

DRUGS (1)
  1. ZOSYN [Suspect]
     Indication: INFECTION
     Dosage: 3.375 GM IV Q 6 H
     Route: 042
     Dates: start: 20050901, end: 20050903

REACTIONS (2)
  - BODY TEMPERATURE INCREASED [None]
  - DIARRHOEA [None]
